FAERS Safety Report 9333717 (Version 1)
Quarter: 2013Q2

REPORT INFORMATION
  Report Type: Spontaneous
  Country: US (occurrence: None)
  Receive Date: 20130604
  Receipt Date: 20130604
  Transmission Date: 20140414
  Serious: Yes (Other)
  Sender: FDA-Public Use
  Company Number: JPI-P-032282

PATIENT
  Age: 42 Year
  Sex: Female

DRUGS (2)
  1. XYREM (500 MILLIGRAM/MILLILITERS, SOLUTION) (SODIUM OXYBATE) [Suspect]
     Indication: FIBROMYALGIA
     Dosage: 4.5 GM (2.25 GM, 2 IN 1 D), ORAL
     Route: 048
     Dates: start: 20051014
  2. UNSPECIFIED MEDICATION [Concomitant]

REACTIONS (5)
  - Drug tolerance [None]
  - Poor quality sleep [None]
  - Malaise [None]
  - Pain [None]
  - Skin warm [None]
